FAERS Safety Report 4550659-3 (Version None)
Quarter: 2005Q1

REPORT INFORMATION
  Report Type: 
  Country: None (occurrence: None)
  Receive Date: 20050112
  Receipt Date: 20050104
  Transmission Date: 20050727
  Serious: Yes (Hospitalization)
  Sender: FDA-Public Use
  Company Number: GB-ABBOTT-05P-167-0285616-00

PATIENT
  Age: 92 Year
  Sex: Female

DRUGS (7)
  1. CLARITHROMYCIN [Suspect]
     Indication: LOWER RESPIRATORY TRACT INFECTION
     Route: 042
     Dates: start: 20030506, end: 20030512
  2. CEFUROXIME [Suspect]
     Indication: LOWER RESPIRATORY TRACT INFECTION
     Route: 042
     Dates: start: 20030506, end: 20030512
  3. LISINOPRIL [Concomitant]
     Indication: HYPERTENSION
     Route: 048
  4. AMISULPRIDE [Concomitant]
     Indication: DEMENTIA
     Route: 048
  5. ASPIRIN [Concomitant]
     Indication: HYPERTENSION
     Route: 048
  6. TEMAZEPAM [Concomitant]
     Indication: DEMENTIA
     Route: 048
  7. HYDROXYZINE HYDROCHLORIDE [Concomitant]
     Indication: HYPERSENSITIVITY
     Route: 048

REACTIONS (1)
  - CLOSTRIDIUM COLITIS [None]
